FAERS Safety Report 8800436 (Version 1)
Quarter: 2012Q4

REPORT INFORMATION
  Report Type: 
  Country: US (occurrence: US)
  Receive Date: 20120921
  Receipt Date: 20120921
  Transmission Date: 20130627
  Serious: Yes (Other)
  Sender: FDA-Public Use
  Company Number: PHHY2012US081752

PATIENT
  Age: 71 Year
  Sex: Female

DRUGS (2)
  1. BUFFERIN REGULAR STRENGTH [Suspect]
     Indication: CARDIAC DISORDER
     Route: 048
  2. BUFFERIN REGULAR STRENGTH [Suspect]
     Dosage: 1 DF, daily dose
     Route: 048

REACTIONS (3)
  - Myocardial infarction [Recovered/Resolved]
  - Wrong technique in drug usage process [Unknown]
  - Cardiac failure congestive [None]
